FAERS Safety Report 4666725-8 (Version None)
Quarter: 2005Q2

REPORT INFORMATION
  Report Type: 
  Country: None (occurrence: None)
  Receive Date: 20050518
  Receipt Date: 20050504
  Transmission Date: 20051028
  Serious: Yes (Hospitalization, Other)
  Sender: FDA-Public Use
  Company Number: 2005BI007107

PATIENT
  Age: 46 Year
  Sex: Female
  Weight: 72.5755 kg

DRUGS (1)
  1. AVONEX [Suspect]
     Indication: MULTIPLE SCLEROSIS
     Dosage: 30 UG; QW; IM
     Route: 030
     Dates: start: 20030101, end: 20050322

REACTIONS (8)
  - BACK PAIN [None]
  - IATROGENIC INJURY [None]
  - INSOMNIA [None]
  - MONOPLEGIA [None]
  - MUSCLE SPASMS [None]
  - NERVOUSNESS [None]
  - SPINAL CORD INJURY [None]
  - STAPHYLOCOCCAL INFECTION [None]
